APPROVED DRUG PRODUCT: LUNELLE
Active Ingredient: ESTRADIOL CYPIONATE; MEDROXYPROGESTERONE ACETATE
Strength: 5MG/0.5ML;25MG/0.5ML **Federal Register determination that product was not discontinued or withdrawn for safety or effectiveness reasons**
Dosage Form/Route: INJECTABLE;INTRAMUSCULAR
Application: N020874 | Product #001
Applicant: PHARMACIA AND UPJOHN CO
Approved: Oct 5, 2000 | RLD: Yes | RS: No | Type: DISCN